FAERS Safety Report 25643611 (Version 1)
Quarter: 2025Q3

REPORT INFORMATION
  Report Type: Spontaneous
  Country: US (occurrence: US)
  Receive Date: 20250805
  Receipt Date: 20250805
  Transmission Date: 20251020
  Serious: Yes (Hospitalization, Other)
  Sender: AMGEN
  Company Number: US-AMGEN-USASP2025151074

PATIENT
  Age: 75 Year
  Sex: Female

DRUGS (7)
  1. KRYSTEXXA [Suspect]
     Active Substance: PEGLOTICASE
     Indication: Gout
     Route: 040
     Dates: start: 2023
  2. KRYSTEXXA [Suspect]
     Active Substance: PEGLOTICASE
     Route: 040
     Dates: start: 2024, end: 2024
  3. PREDNISONE [Suspect]
     Active Substance: PREDNISONE
     Indication: Gout
     Dosage: 5 MILLIGRAM, QD, REDUCED DOSE
     Route: 065
     Dates: start: 2023
  4. MYCOPHENOLATE MOFETIL [Suspect]
     Active Substance: MYCOPHENOLATE MOFETIL
     Indication: Gout
     Route: 065
     Dates: start: 2024
  5. VANCOMYCIN [Suspect]
     Active Substance: VANCOMYCIN
     Indication: Staphylococcal bacteraemia
     Route: 040
  6. CEFEPIME [Concomitant]
     Active Substance: CEFEPIME HYDROCHLORIDE
     Indication: Staphylococcal bacteraemia
     Route: 040
  7. DAPTOMYCIN [Concomitant]
     Active Substance: DAPTOMYCIN
     Indication: Staphylococcal bacteraemia

REACTIONS (10)
  - Abscess limb [Unknown]
  - Staphylococcal bacteraemia [Unknown]
  - Osteomyelitis [Unknown]
  - Renal impairment [Unknown]
  - Fall [Unknown]
  - Muscle injury [Unknown]
  - Anaemia [Unknown]
  - Decreased immune responsiveness [Unknown]
  - Diarrhoea [Recovered/Resolved]
  - Impaired healing [Unknown]

NARRATIVE: CASE EVENT DATE: 20240101
